FAERS Safety Report 5084701-0 (Version None)
Quarter: 2006Q3

REPORT INFORMATION
  Report Type: 
  Country: None (occurrence: None)
  Receive Date: 20060818
  Receipt Date: 20060818
  Transmission Date: 20061208
  Serious: No
  Sender: FDA-Public Use
  Company Number: None

PATIENT
  Sex: Male
  Weight: 124.966 kg

DRUGS (12)
  1. OMEPRAZOLE [Suspect]
     Indication: DYSPEPSIA
     Dosage: 20 MG QD PO
     Route: 048
     Dates: start: 20051027, end: 20060512
  2. OXYCODONE AND ACETAMINOPHEN [Concomitant]
  3. ACETAMINOPHEN [Concomitant]
  4. ASPIRIN [Concomitant]
  5. BUSPIRONE HCL [Concomitant]
  6. CHLORZOXAZONE [Concomitant]
  7. DANTROLENE NA [Concomitant]
  8. DOCUSATE NA [Concomitant]
  9. DOXYCYCLINE HYCLATE [Concomitant]
  10. ETODOLAC [Concomitant]
  11. HYDROCODONE 5/ ACETAMINOPHEN 500MG [Concomitant]
  12. SALSALATE [Concomitant]

REACTIONS (4)
  - BACK PAIN [None]
  - MIGRAINE [None]
  - MYALGIA [None]
  - PAIN [None]
